FAERS Safety Report 15918897 (Version 1)
Quarter: 2019Q1

REPORT INFORMATION
  Report Type: Spontaneous
  Country: CN (occurrence: CN)
  Receive Date: 20190205
  Receipt Date: 20190205
  Transmission Date: 20190417
  Serious: Yes (Other)
  Sender: FDA-Public Use
  Company Number: CN-BRACCO-2019CN00449

PATIENT
  Age: 71 Year
  Sex: Male
  Weight: 80 kg

DRUGS (1)
  1. IOPAMIRO [Suspect]
     Active Substance: IOPAMIDOL
     Indication: DIAGNOSTIC PROCEDURE
     Dosage: 120 ML, SINGLE
     Route: 042
     Dates: start: 20180925, end: 20180925

REACTIONS (2)
  - Pallor [Recovering/Resolving]
  - Respiration abnormal [Recovering/Resolving]

NARRATIVE: CASE EVENT DATE: 20180925
